FAERS Safety Report 9412245 (Version 1)
Quarter: 2013Q3

REPORT INFORMATION
  Report Type: Report from Study
  Country: TR (occurrence: TR)
  Receive Date: 20130722
  Receipt Date: 20130722
  Transmission Date: 20140515
  Serious: Yes (Death)
  Sender: FDA-Public Use
  Company Number: TR-ELI_LILLY_AND_COMPANY-TR201307005466

PATIENT
  Sex: Female

DRUGS (1)
  1. LISPRO [Suspect]
     Dosage: UNK, UNKNOWN
     Route: 064

REACTIONS (2)
  - Stillbirth [Fatal]
  - Foetal exposure during pregnancy [Recovered/Resolved]
